FAERS Safety Report 7996445-3 (Version None)
Quarter: 2011Q4

REPORT INFORMATION
  Report Type: 
  Country: None (occurrence: None)
  Receive Date: 20111220
  Receipt Date: 20111215
  Transmission Date: 20120403
  Serious: Yes (Life-Threatening, Hospitalization, Other)
  Sender: FDA-Public Use
  Company Number: US-ASTRAZENECA-2011SE00412

PATIENT
  Age: 73 Year
  Sex: Female

DRUGS (4)
  1. PULMICORT FLEXHALER [Suspect]
     Route: 055
  2. NEXIUM [Suspect]
     Route: 048
  3. ZOLOFT [Concomitant]
  4. TOPROL-XL [Suspect]
     Route: 048

REACTIONS (14)
  - NEOPLASM MALIGNANT [None]
  - GLAUCOMA [None]
  - COMA [None]
  - FALL [None]
  - VOMITING [None]
  - MALAISE [None]
  - BLADDER CANCER [None]
  - MUSCLE STRAIN [None]
  - DRUG DOSE OMISSION [None]
  - ULCER [None]
  - RETCHING [None]
  - DIARRHOEA [None]
  - LUNG DISORDER [None]
  - ORBITAL CYST [None]
